FAERS Safety Report 4479265-6 (Version None)
Quarter: 2004Q4

REPORT INFORMATION
  Report Type: 
  Country: None (occurrence: None)
  Receive Date: 20041015
  Receipt Date: 20041008
  Transmission Date: 20050328
  Serious: Yes (Death)
  Sender: FDA-Public Use
  Company Number: 2004AC00453

PATIENT
  Age: 48 Year
  Sex: Female

DRUGS (4)
  1. SEROQUEL [Suspect]
  2. NAPROXEN [Suspect]
  3. TOPIRMATE [Suspect]
  4. TECNAL [Suspect]

REACTIONS (2)
  - COMPLETED SUICIDE [None]
  - MULTIPLE DRUG OVERDOSE [None]
